FAERS Safety Report 12810010 (Version 1)
Quarter: 2016Q4

REPORT INFORMATION
  Report Type: Spontaneous
  Country: GB (occurrence: GB)
  Receive Date: 20161005
  Receipt Date: 20161005
  Transmission Date: 20170207
  Serious: Yes (Other)
  Sender: FDA-Public Use
  Company Number: GB-ACCORD-044547

PATIENT
  Age: 21 Year
  Sex: Female
  Weight: 80 kg

DRUGS (6)
  1. INSTILLAGEL [Concomitant]
     Active Substance: CHLORHEXIDINE GLUCONATE\LIDOCAINE HYDROCHLORIDE
     Dosage: USE AS DIRECTED
     Dates: start: 20160713, end: 20160714
  2. RECTOGESIC [Concomitant]
     Active Substance: NITROGLYCERIN
     Dosage: USE AS DIRECTED
     Dates: start: 20160713, end: 20160714
  3. CITALOPRAM [Concomitant]
     Active Substance: CITALOPRAM HYDROBROMIDE
     Dates: start: 20160112
  4. OMEPRAZOLE. [Concomitant]
     Active Substance: OMEPRAZOLE
     Dates: start: 20160720, end: 20160817
  5. DILTIAZEM. [Concomitant]
     Active Substance: DILTIAZEM
     Dosage: USE AS DIRECTED
     Dates: start: 20160720, end: 20160721
  6. AMITRIPTYLINE [Suspect]
     Active Substance: AMITRIPTYLINE
     Indication: PRODUCT USED FOR UNKNOWN INDICATION
     Dates: start: 20160908

REACTIONS (2)
  - Abdominal discomfort [Unknown]
  - Swelling face [Recovered/Resolved]

NARRATIVE: CASE EVENT DATE: 20160920
